FAERS Safety Report 5704012-7 (Version None)
Quarter: 2008Q2

REPORT INFORMATION
  Report Type: 
  Country: None (occurrence: None)
  Receive Date: 20080414
  Receipt Date: 20080403
  Transmission Date: 20081010
  Serious: Yes (Hospitalization, Other)
  Sender: FDA-Public Use
  Company Number: ES-NOVOPROD-273765

PATIENT
  Sex: Female
  Weight: 55 kg

DRUGS (1)
  1. NOVOSEVEN [Suspect]
     Indication: TRAUMATIC HAEMORRHAGE
     Dosage: 3 DOSES
     Route: 042
     Dates: start: 20080331, end: 20080331

REACTIONS (2)
  - DEEP VEIN THROMBOSIS [None]
  - PERIPHERAL ISCHAEMIA [None]
